FAERS Safety Report 13320825 (Version 1)
Quarter: 2017Q1

REPORT INFORMATION
  Report Type: Spontaneous
  Country: US (occurrence: US)
  Receive Date: 20170310
  Receipt Date: 20170310
  Transmission Date: 20170428
  Serious: Yes (Hospitalization)
  Sender: FDA-Public Use
  Company Number: US-RARE DISEASE THERAPEUTICS, INC.-1064105

PATIENT
  Age: 3 Year
  Sex: Male
  Weight: 8.7 kg

DRUGS (6)
  1. LEUCOVORIN. [Concomitant]
     Active Substance: LEUCOVORIN
  2. LEVOCARNITINE. [Concomitant]
     Active Substance: LEVOCARNITINE
  3. MULTIVITAMIN PLUS IRON [Concomitant]
  4. CYSTADANE [Suspect]
     Active Substance: BETAINE
     Indication: AMINO ACID METABOLISM DISORDER
     Dates: start: 20160119
  5. PEDIASURE [Concomitant]
     Active Substance: VITAMINS
  6. HYDROXOCOBALAMIN [Concomitant]
     Active Substance: HYDROXOCOBALAMIN

REACTIONS (2)
  - Off label use [Unknown]
  - Viral infection [Unknown]

NARRATIVE: CASE EVENT DATE: 20160119
